FAERS Safety Report 7449065-3 (Version None)
Quarter: 2011Q2

REPORT INFORMATION
  Report Type: 
  Country: None (occurrence: None)
  Receive Date: 20110501
  Receipt Date: 20110422
  Transmission Date: 20111010
  Serious: Yes (Other)
  Sender: FDA-Public Use
  Company Number: NL-BRISTOL-MYERS SQUIBB COMPANY-15683410

PATIENT
  Age: 44 Year
  Sex: Female

DRUGS (3)
  1. TAXOTERE [Suspect]
     Indication: BREAST CANCER
  2. ENDOXAN [Suspect]
     Indication: BREAST CANCER
     Dosage: DOSE INCREASED TO 975MG
  3. DOXORUBICIN [Suspect]
     Indication: BREAST CANCER

REACTIONS (1)
  - RECALL PHENOMENON [None]
